FAERS Safety Report 8489005-1 (Version None)
Quarter: 2012Q3

REPORT INFORMATION
  Report Type: 
  Country: None (occurrence: None)
  Receive Date: 20120705
  Receipt Date: 20120629
  Transmission Date: 20120928
  Serious: Yes (Hospitalization, Other)
  Sender: FDA-Public Use
  Company Number: US-PFIZER INC-2012058055

PATIENT
  Sex: Female

DRUGS (12)
  1. NEXIUM [Concomitant]
     Indication: GASTROOESOPHAGEAL REFLUX DISEASE
     Dosage: UNK
     Dates: start: 20040101
  2. POTASSIUM [Concomitant]
     Indication: IRRITABLE BOWEL SYNDROME
     Dosage: UNK
     Dates: start: 20040101
  3. LEXAPRO [Concomitant]
     Indication: BIPOLAR DISORDER
     Dosage: UNK
     Dates: start: 20040101
  4. LIPITOR [Concomitant]
     Indication: BLOOD CHOLESTEROL INCREASED
     Dosage: UNK
     Dates: start: 20040101
  5. CHANTIX [Suspect]
     Dosage: UNK
     Dates: start: 20090301
  6. AMITRIPTYLINE [Concomitant]
     Indication: SLEEP DISORDER THERAPY
     Dosage: UNK
     Dates: start: 20040101
  7. CHANTIX [Suspect]
     Indication: SMOKING CESSATION THERAPY
     Dosage: STARTER PACK
     Dates: start: 20081119, end: 20090701
  8. COLACE [Concomitant]
     Indication: IRRITABLE BOWEL SYNDROME
     Dosage: UNK
     Dates: start: 20040101
  9. KLONOPIN [Concomitant]
     Indication: ANXIETY
     Dosage: UNK
     Dates: start: 20040101
  10. FLONASE [Concomitant]
     Dosage: UNK
     Dates: start: 20040101
  11. SYMBICORT [Concomitant]
     Dosage: UNK
     Dates: start: 20040101
  12. XOPENEX [Concomitant]
     Indication: ASTHMA
     Dosage: UNK
     Dates: start: 20040101

REACTIONS (4)
  - SUICIDE ATTEMPT [None]
  - DEPRESSION [None]
  - ABNORMAL BEHAVIOUR [None]
  - ANXIETY [None]
